FAERS Safety Report 4559348-2 (Version None)
Quarter: 2005Q1

REPORT INFORMATION
  Report Type: 
  Country: None (occurrence: None)
  Receive Date: 20050119
  Receipt Date: 20041224
  Transmission Date: 20050727
  Serious: Yes (Death, Congenital Anomaly)
  Sender: FDA-Public Use
  Company Number: A01200406327

PATIENT
  Age: 0 Day
  Sex: Female

DRUGS (7)
  1. MILRILA (MILRINONE) [Suspect]
     Indication: PULMONARY VASCULAR DISORDER
     Dosage: SEE IMAGE
     Route: 041
     Dates: start: 20021004, end: 20021004
  2. MILRILA (MILRINONE) [Suspect]
     Indication: PULMONARY VASCULAR DISORDER
     Dosage: SEE IMAGE
     Route: 041
     Dates: start: 20021004, end: 20021004
  3. MILRILA (MILRINONE) [Suspect]
     Indication: PULMONARY VASCULAR DISORDER
     Dosage: SEE IMAGE
     Route: 041
     Dates: start: 20021005, end: 20021005
  4. MILRILA (MILRINONE) [Suspect]
     Indication: PULMONARY VASCULAR DISORDER
     Dosage: SEE IMAGE
     Route: 041
     Dates: start: 20021005, end: 20021005
  5. MILRILA (MILRINONE) [Suspect]
     Indication: PULMONARY VASCULAR DISORDER
     Dosage: SEE IMAGE
     Route: 041
     Dates: start: 20021005, end: 20021008
  6. NITRIC OXIDE [Concomitant]
  7. SURFACTANT [Concomitant]

REACTIONS (4)
  - BLOOD PRESSURE DECREASED [None]
  - INTRAVENTRICULAR HAEMORRHAGE NEONATAL [None]
  - PATENT DUCTUS ARTERIOSUS [None]
  - THERAPY NON-RESPONDER [None]
